FAERS Safety Report 25531404 (Version 1)
Quarter: 2025Q3

REPORT INFORMATION
  Report Type: Report from Study
  Country: EU (occurrence: EU)
  Receive Date: 20250708
  Receipt Date: 20250708
  Transmission Date: 20251021
  Serious: Yes (Congenital Anomaly)
  Sender: ABBVIE
  Company Number: EU-ABBVIE-6360284

PATIENT
  Sex: Female

DRUGS (1)
  1. SKYRIZI [Suspect]
     Active Substance: RISANKIZUMAB-RZAA
     Indication: Maternal exposure timing unspecified
     Route: 064

REACTIONS (2)
  - Haemangioma of skin [Unknown]
  - Foetal exposure during pregnancy [Unknown]
